FAERS Safety Report 24925944 (Version 1)
Quarter: 2025Q1

REPORT INFORMATION
  Report Type: Spontaneous
  Country: JP (occurrence: JP)
  Receive Date: 20250205
  Receipt Date: 20250205
  Transmission Date: 20250409
  Serious: Yes (Hospitalization, Other)
  Sender: MERCK
  Company Number: JP-MSD-2502JPN000316JAA

PATIENT
  Age: 8 Decade
  Sex: Female

DRUGS (2)
  1. KEYTRUDA [Suspect]
     Active Substance: PEMBROLIZUMAB
     Indication: Ovarian cancer
     Route: 065
  2. KEYTRUDA [Suspect]
     Active Substance: PEMBROLIZUMAB
     Indication: Cancer with a high tumour mutational burden

REACTIONS (8)
  - Adrenocorticotropic hormone deficiency [Unknown]
  - Bacteraemia [Unknown]
  - Decreased appetite [Unknown]
  - Malaise [Unknown]
  - Adrenal insufficiency [Unknown]
  - Staphylococcal infection [Unknown]
  - Diarrhoea [Unknown]
  - Pyrexia [Unknown]
